FAERS Safety Report 12538991 (Version 3)
Quarter: 2016Q3

REPORT INFORMATION
  Report Type: Report from Study
  Country: US (occurrence: US)
  Receive Date: 20160708
  Receipt Date: 20160726
  Transmission Date: 20161109
  Serious: Yes (Other)
  Sender: FDA-Public Use
  Company Number: US-AMGEN-USASL2016087083

PATIENT
  Age: 64 Year
  Sex: Female

DRUGS (1)
  1. ENBREL [Suspect]
     Active Substance: ETANERCEPT
     Indication: PRODUCT USED FOR UNKNOWN INDICATION
     Dosage: UNK
     Route: 065
     Dates: start: 2016

REACTIONS (9)
  - Injection site bruising [Not Recovered/Not Resolved]
  - Muscle spasms [Unknown]
  - Drug effect decreased [Unknown]
  - Hyperhidrosis [Unknown]
  - Joint fluid drainage [Unknown]
  - Arthralgia [Recovering/Resolving]
  - Joint effusion [Recovering/Resolving]
  - Pyrexia [Recovered/Resolved]
  - Injection site erythema [Unknown]

NARRATIVE: CASE EVENT DATE: 2016
